FAERS Safety Report 4522243-9 (Version None)
Quarter: 2004Q4

REPORT INFORMATION
  Report Type: 
  Country: None (occurrence: None)
  Receive Date: 20041206
  Receipt Date: 20041129
  Transmission Date: 20050328
  Serious: Yes (Death)
  Sender: FDA-Public Use
  Company Number: 200420673BWH

PATIENT
  Age: 71 Year
  Sex: Male
  Weight: 117.9352 kg

DRUGS (15)
  1. AVELOX [Suspect]
     Indication: PNEUMONIA
     Dosage: 400 MG, ONCE, INTRAVENOUS
     Route: 042
     Dates: start: 20040401
  2. ALBUTEROL NEB (SALBUTAMOL) [Concomitant]
     Dosage: 2.5 MG, ONCE, RESPIRATORY
     Route: 055
     Dates: start: 20040401
  3. ATROVENT [Suspect]
     Indication: PNEUMONIA
     Dosage: ONCE, RESPIRATORY (INHALATION)
     Route: 055
     Dates: start: 20040401
  4. ROCEPHIN [Suspect]
     Dosage: 1G, ONCE, INTRAVENOUS
     Route: 042
  5. TYLENOL [Suspect]
     Dosage: 650 MG, PRN, ORAL
     Route: 048
     Dates: start: 20040401
  6. LISINOPRIL [Concomitant]
  7. HYDROCHLOROTHIAZIDE [Concomitant]
  8. COUMADIN [Concomitant]
  9. ATENOLOL [Concomitant]
  10. BCG (BACILLE CALMETTE-GUERIN) [Concomitant]
  11. ATROVENT [Concomitant]
  12. SEREVENT [Concomitant]
  13. AZMACORT [Concomitant]
  14. FLOMAX [Concomitant]
  15. MULTI-VITAMIN [Concomitant]

REACTIONS (8)
  - ATRIAL FIBRILLATION [None]
  - CARDIAC ARREST [None]
  - CARDIAC FAILURE CONGESTIVE [None]
  - ELECTROMECHANICAL DISSOCIATION [None]
  - HAEMOPTYSIS [None]
  - PULMONARY EMBOLISM [None]
  - PULMONARY OEDEMA [None]
  - RENAL FAILURE [None]
